FAERS Safety Report 9308778 (Version 1)
Quarter: 2013Q2

REPORT INFORMATION
  Report Type: Spontaneous
  Country: US (occurrence: US)
  Receive Date: 20130524
  Receipt Date: 20130524
  Transmission Date: 20140414
  Serious: No
  Sender: FDA-Public Use
  Company Number: US-NOVEN-13US006310

PATIENT
  Age: 42 Year
  Sex: Female
  Weight: 65.76 kg

DRUGS (1)
  1. MINIVELLE [Suspect]
     Indication: MENOPAUSAL SYMPTOMS
     Dosage: .1 MG, 2/WK
     Route: 062
     Dates: start: 20130114, end: 20130214

REACTIONS (3)
  - Application site discolouration [Not Recovered/Not Resolved]
  - Application site irritation [Not Recovered/Not Resolved]
  - Product quality issue [Not Recovered/Not Resolved]
